FAERS Safety Report 9381225 (Version 1)
Quarter: 2013Q3

REPORT INFORMATION
  Report Type: Spontaneous
  Country: US (occurrence: US)
  Receive Date: 20130703
  Receipt Date: 20130703
  Transmission Date: 20140515
  Serious: No
  Sender: FDA-Public Use
  Company Number: US-BAYER-2013-078667

PATIENT
  Age: 72 Year
  Sex: Male

DRUGS (1)
  1. STAXYN (FDT/ODT) [Suspect]
     Dosage: 10 MG, QD
     Route: 048
     Dates: start: 20130621

REACTIONS (1)
  - Drug ineffective [None]
